FAERS Safety Report 6620150-9 (Version None)
Quarter: 2010Q1

REPORT INFORMATION
  Report Type: 
  Country: None (occurrence: None)
  Receive Date: 20100309
  Receipt Date: 20100226
  Transmission Date: 20100710
  Serious: Yes (Hospitalization)
  Sender: FDA-Public Use
  Company Number: DE-ELI_LILLY_AND_COMPANY-DE201003000391

PATIENT
  Age: 16 Year
  Sex: Female
  Weight: 87 kg

DRUGS (2)
  1. GEMZAR [Suspect]
     Indication: HODGKIN'S DISEASE
     Dosage: 100 MG/M2, OVER 30 MINUTES
     Route: 042
     Dates: start: 20100101
  2. VINORELBINE [Concomitant]
     Dosage: UNK, UNKNOWN
     Route: 065

REACTIONS (3)
  - CARDIOMYOPATHY [None]
  - FOCAL SEGMENTAL GLOMERULOSCLEROSIS [None]
  - NEPHROTIC SYNDROME [None]
